FAERS Safety Report 19918727 (Version 1)
Quarter: 2021Q4

REPORT INFORMATION
  Report Type: Spontaneous
  Country: CA (occurrence: CA)
  Receive Date: 20211005
  Receipt Date: 20211005
  Transmission Date: 20220303
  Serious: Yes (Hospitalization, Other)
  Sender: FDA-Public Use
  Company Number: CA-TEVA-2021-CA-1960628

PATIENT
  Sex: Female

DRUGS (10)
  1. METHOTREXATE [Suspect]
     Active Substance: METHOTREXATE
     Indication: Product used for unknown indication
     Route: 058
  2. ACTEMRA [Suspect]
     Active Substance: TOCILIZUMAB
     Indication: Product used for unknown indication
     Route: 058
  3. ASPIRIN [Concomitant]
     Active Substance: ASPIRIN
     Route: 048
  4. FOLIC ACID [Concomitant]
     Active Substance: FOLIC ACID
  5. NAPROXEN [Concomitant]
     Active Substance: NAPROXEN
  6. NAPROXEN SODIUM [Concomitant]
     Active Substance: NAPROXEN SODIUM
  7. PANTOPRAZOLE MAGNESIUM [Concomitant]
     Active Substance: PANTOPRAZOLE MAGNESIUM
  8. PREDNISONE [Concomitant]
     Active Substance: PREDNISONE
     Route: 048
  9. VENTOLIN [Concomitant]
     Active Substance: ALBUTEROL SULFATE
  10. DICLOFENAC SODIUM [Concomitant]
     Active Substance: DICLOFENAC SODIUM

REACTIONS (6)
  - Carpal tunnel syndrome [Unknown]
  - Infection [Unknown]
  - Urinary tract infection [Unknown]
  - Drug ineffective [Unknown]
  - Off label use [Unknown]
  - Intentional product use issue [Unknown]
